FAERS Safety Report 5168181-2 (Version None)
Quarter: 2006Q4

REPORT INFORMATION
  Report Type: 
  Country: None (occurrence: None)
  Receive Date: 20061130
  Receipt Date: 20061003
  Transmission Date: 20070319
  Serious: Yes (Other)
  Sender: FDA-Public Use
  Company Number: 2006121084

PATIENT
  Age: 35 Year
  Sex: Female
  Weight: 68.0396 kg

DRUGS (6)
  1. NEURONTIN [Suspect]
     Indication: NEUROPATHY PERIPHERAL
     Dosage: 300 MG (300 MG, 1 IN 1 D), ORAL
     Route: 048
     Dates: start: 20060901, end: 20061001
  2. SYNTHROID [Concomitant]
  3. MULTIVITAMIN [Concomitant]
  4. FOLIC ACID [Concomitant]
  5. MAXALT [Concomitant]
  6. ALBUTEROL [Concomitant]

REACTIONS (2)
  - CATARACT [None]
  - VISION BLURRED [None]
